FAERS Safety Report 9216835 (Version 2)
Quarter: 2013Q3

REPORT INFORMATION
  Report Type: Spontaneous
  Country: DK (occurrence: DK)
  Receive Date: 20130408
  Receipt Date: 20130906
  Transmission Date: 20140515
  Serious: Yes (Other)
  Sender: FDA-Public Use
  Company Number: DK-PFIZER INC-2013109102

PATIENT
  Age: 46 Year
  Sex: Female

DRUGS (4)
  1. LYRICA [Suspect]
     Indication: BIPOLAR DISORDER
     Dosage: STRENGTH: 150 MG
     Route: 048
     Dates: start: 20110310
  2. SEROQUEL [Suspect]
     Indication: BIPOLAR DISORDER
     Dosage: DOSE: 200 MG AT NIGHT.
     Route: 048
     Dates: start: 20100614
  3. LAMICTAL [Suspect]
     Indication: BIPOLAR DISORDER
     Dosage: DOSE: 250 MG AT NIGHT, STRENGTH: 200 MG AND 50 MG
     Route: 048
     Dates: start: 20100407
  4. LITAREX [Suspect]
     Indication: BIPOLAR DISORDER
     Dosage: DOSE: 3 TABLETS DAILY. STRENGTH: 6 MMOL LI+
     Route: 048
     Dates: start: 20120304

REACTIONS (5)
  - Polyneuropathy [Not Recovered/Not Resolved]
  - Paraesthesia [Not Recovered/Not Resolved]
  - Pain in extremity [Not Recovered/Not Resolved]
  - Skin burning sensation [Not Recovered/Not Resolved]
  - Sleep disorder [Not Recovered/Not Resolved]
